FAERS Safety Report 8802707 (Version 1)
Quarter: 2012Q4

REPORT INFORMATION
  Report Type: 
  Country: US (occurrence: US)
  Receive Date: 20120921
  Receipt Date: 20120921
  Transmission Date: 20130627
  Serious: Yes (Other)
  Sender: FDA-Public Use
  Company Number: PHHY2012US079874

PATIENT
  Age: 27 Year
  Sex: Female

DRUGS (5)
  1. CARISOPRODOL [Suspect]
     Dosage: 350 mg (15-20/day)
  2. HYDROCODONE/APAP [Suspect]
     Dosage: 30 DF/day (30-40 tablets / day)
  3. HYDROCODONE/APAP [Suspect]
     Dosage: 3 g/day
  4. METOCLOPRAMIDE [Concomitant]
  5. MILK OF MAGNESIA [Concomitant]

REACTIONS (12)
  - Metabolic acidosis [Unknown]
  - Glutathione s-transferase decreased [Unknown]
  - Weight decreased [Unknown]
  - Gallbladder oedema [Unknown]
  - Helicobacter infection [Unknown]
  - Large intestine polyp [Unknown]
  - Fatigue [Unknown]
  - Abdominal tenderness [Unknown]
  - Abdominal pain [Unknown]
  - Nausea [Unknown]
  - Vomiting [Unknown]
  - Overdose [Unknown]
